FAERS Safety Report 7006046-1 (Version None)
Quarter: 2010Q3

REPORT INFORMATION
  Report Type: 
  Country: None (occurrence: None)
  Receive Date: 20100917
  Receipt Date: 20100902
  Transmission Date: 20110219
  Serious: Yes (Other)
  Sender: FDA-Public Use
  Company Number: AUR-APL-2010-02165

PATIENT
  Age: 65 Year
  Sex: Male

DRUGS (6)
  1. CARVEDILOL [Suspect]
     Indication: HEART RATE INCREASED
     Dosage: 12.5MG,
  2. REVATIO FILM-COATED TABLET [Suspect]
     Indication: PULMONARY ARTERIAL HYPERTENSION
     Dosage: 20 MG TID
  3. CLEXANE 0.9 [Concomitant]
  4. XIPAMIDE 10MG [Concomitant]
  5. TORASEMIDE 20MG [Concomitant]
  6. PHENPROCOUMON (DOSE UNKNOWN) [Concomitant]

REACTIONS (1)
  - ERECTILE DYSFUNCTION [None]
